FAERS Safety Report 6894202-2 (Version None)
Quarter: 2010Q3

REPORT INFORMATION
  Report Type: 
  Country: None (occurrence: None)
  Receive Date: 20100802
  Receipt Date: 20100720
  Transmission Date: 20110219
  Serious: Yes (Other)
  Sender: FDA-Public Use
  Company Number: PHHY2010NL46003

PATIENT
  Sex: Male

DRUGS (2)
  1. RITALIN [Suspect]
     Dosage: 4-5 PILLS OF 10 MG
  2. RITALIN [Suspect]
     Indication: ATTENTION DEFICIT/HYPERACTIVITY DISORDER

REACTIONS (6)
  - BLEEDING TIME SHORTENED [None]
  - BLOOD DISORDER [None]
  - CARDIAC DISORDER [None]
  - HAEMORRHAGE [None]
  - HEART RATE INCREASED [None]
  - MUSCLE SPASMS [None]
